FAERS Safety Report 7905557-1 (Version None)
Quarter: 2011Q4

REPORT INFORMATION
  Report Type: 
  Country: None (occurrence: None)
  Receive Date: 20111110
  Receipt Date: 20111031
  Transmission Date: 20120403
  Serious: No
  Sender: FDA-Public Use
  Company Number: US-BIOGENIDEC-2011BI041784

PATIENT
  Sex: Female

DRUGS (2)
  1. TYSABRI [Suspect]
     Indication: MULTIPLE SCLEROSIS
     Route: 042
     Dates: start: 20110826
  2. TYSABRI [Suspect]
     Route: 042
     Dates: start: 20070109, end: 20100630

REACTIONS (2)
  - MUSCLE SPASTICITY [None]
  - SOMNOLENCE [None]
